FAERS Safety Report 23117097 (Version 1)
Quarter: 2023Q4

REPORT INFORMATION
  Report Type: Spontaneous
  Country: US (occurrence: None)
  Receive Date: 20231026
  Receipt Date: 20231026
  Transmission Date: 20240110
  Serious: No
  Sender: FDA-Public Use
  Company Number: None

PATIENT
  Age: 66 Year
  Sex: Female

DRUGS (1)
  1. TERIPARATIDE [Suspect]
     Active Substance: TERIPARATIDE
     Indication: Osteoporosis
     Dosage: OTHER STRENGTH : 620 MCG/2.48 ML;?FREQUENCY : DAILY;?
     Route: 058
     Dates: start: 20231005, end: 20231026

REACTIONS (8)
  - Tremor [None]
  - Headache [None]
  - Nausea [None]
  - Dry mouth [None]
  - Rhinorrhoea [None]
  - Muscular weakness [None]
  - Fatigue [None]
  - Urinary tract infection [None]

NARRATIVE: CASE EVENT DATE: 20231023
